FAERS Safety Report 9252694 (Version 1)
Quarter: 2013Q2

REPORT INFORMATION
  Report Type: Spontaneous
  Country: US (occurrence: US)
  Receive Date: 20130424
  Receipt Date: 20130424
  Transmission Date: 20140414
  Serious: Yes (Other)
  Sender: FDA-Public Use
  Company Number: US-ELI_LILLY_AND_COMPANY-US201304004616

PATIENT
  Age: 54 Year
  Sex: Female

DRUGS (6)
  1. FORTEO [Suspect]
     Indication: OSTEOPOROSIS
     Dosage: UNK, QD
     Dates: start: 201110, end: 201206
  2. AMBIEN [Concomitant]
     Dosage: UNK
  3. XANAX [Concomitant]
     Dosage: UNK
  4. ZOLOFT [Concomitant]
     Dosage: UNK
  5. SUSTIVA [Concomitant]
     Indication: ANTIVIRAL TREATMENT
     Dosage: UNK
  6. EPIVIR [Concomitant]
     Dosage: UNK

REACTIONS (3)
  - Hip fracture [Unknown]
  - Renal impairment [Unknown]
  - Nausea [Unknown]
